FAERS Safety Report 4740582-3 (Version None)
Quarter: 2005Q3

REPORT INFORMATION
  Report Type: 
  Country: None (occurrence: None)
  Receive Date: 20050801
  Receipt Date: 20041014
  Transmission Date: 20060218
  Serious: Yes (Life-Threatening)
  Sender: FDA-Public Use
  Company Number: 209615

PATIENT
  Age: 72 Year
  Sex: Female

DRUGS (3)
  1. RITUXAN [Suspect]
     Indication: LYMPHOMA
     Dosage: 675 MG, UNK, INTRAVENOUS
     Route: 042
     Dates: start: 20040823, end: 20040823
  2. ACETAMINOPHEN [Concomitant]
  3. BENADRYL [Concomitant]

REACTIONS (3)
  - DYSPNOEA [None]
  - HYPERSENSITIVITY [None]
  - HYPOTENSION [None]
